FAERS Safety Report 8246703-2 (Version None)
Quarter: 2012Q1

REPORT INFORMATION
  Report Type: 
  Country: None (occurrence: None)
  Receive Date: 20120330
  Receipt Date: 20120321
  Transmission Date: 20120608
  Serious: Yes (Hospitalization)
  Sender: FDA-Public Use
  Company Number: US-NOVOPROD-347594

PATIENT
  Age: 63 Year
  Sex: Female
  Weight: 87.075 kg

DRUGS (2)
  1. VICTOZA [Suspect]
     Dosage: 1.2 UNK, QD
     Route: 058
     Dates: start: 20120220, end: 20120307
  2. VICTOZA [Suspect]
     Indication: TYPE 2 DIABETES MELLITUS
     Dosage: 0.6 MG, QD
     Route: 058
     Dates: start: 20120213, end: 20120219

REACTIONS (2)
  - PANCREATITIS [None]
  - CHOLELITHIASIS [None]
